FAERS Safety Report 7156449-X (Version None)
Quarter: 2010Q4

REPORT INFORMATION
  Report Type: 
  Country: None (occurrence: None)
  Receive Date: 20101214
  Receipt Date: 20101209
  Transmission Date: 20110411
  Serious: Yes (Death)
  Sender: FDA-Public Use
  Company Number: TW-ROCHE-747614

PATIENT
  Age: 75 Year
  Sex: Female

DRUGS (1)
  1. AVASTIN [Suspect]
     Dosage: FREQUENCY REPORTED AS Q3W
     Route: 042
     Dates: start: 20100401, end: 20101001

REACTIONS (2)
  - LUNG NEOPLASM MALIGNANT [None]
  - MALIGNANT NEOPLASM PROGRESSION [None]
